FAERS Safety Report 19483077 (Version 1)
Quarter: 2021Q3

REPORT INFORMATION
  Report Type: Spontaneous
  Country: IN (occurrence: IN)
  Receive Date: 20210701
  Receipt Date: 20210701
  Transmission Date: 20211014
  Serious: Yes (Other)
  Sender: FDA-Public Use
  Company Number: IN-FRESENIUS KABI-FK202106601

PATIENT
  Age: 55 Year
  Sex: Male

DRUGS (3)
  1. FLUOROURACIL SODIUM [Suspect]
     Active Substance: FLUOROURACIL SODIUM
     Dosage: 2?WEEKLY CYCLES OF 5?FU 400 MG INFUSION OVER 2 DAYS
     Route: 042
  2. IRINOTECAN (MANUFACTURER UNKNOWN) [Suspect]
     Active Substance: IRINOTECAN
     Indication: ADENOCARCINOMA OF COLON
     Dosage: 2?WEEKLY CYCLES OF IRINOTECAN (300 MG ON DAY 1)
     Route: 065
  3. FLUOROURACIL SODIUM [Suspect]
     Active Substance: FLUOROURACIL SODIUM
     Indication: ADENOCARCINOMA OF COLON
     Dosage: 2?WEEKLY CYCLES OF 5?FU 680 MG BOLUS ON DAY 1
     Route: 040

REACTIONS (1)
  - Administration site recall reaction [Recovered/Resolved]
